FAERS Safety Report 16008136 (Version 2)
Quarter: 2019Q1

REPORT INFORMATION
  Report Type: Spontaneous
  Country: BG (occurrence: BG)
  Receive Date: 20190226
  Receipt Date: 20190312
  Transmission Date: 20190418
  Serious: Yes (Hospitalization)
  Sender: FDA-Public Use
  Company Number: BG-009507513-1902BGR008564

PATIENT
  Age: 68 Year
  Sex: Female

DRUGS (2)
  1. KEYTRUDA [Suspect]
     Active Substance: PEMBROLIZUMAB
     Indication: MALIGNANT MELANOMA
     Dosage: UNK
     Dates: start: 201612, end: 20190219
  2. KEYTRUDA [Suspect]
     Active Substance: PEMBROLIZUMAB
     Dosage: UNK
     Dates: start: 20190205

REACTIONS (4)
  - Skin lesion [Recovered/Resolved]
  - Rash [Recovered/Resolved]
  - Skin erosion [Recovered/Resolved]
  - Blister [Recovering/Resolving]

NARRATIVE: CASE EVENT DATE: 201901
